FAERS Safety Report 8986340 (Version 1)
Quarter: 2012Q4

REPORT INFORMATION
  Report Type: 
  Country: US (occurrence: US)
  Receive Date: 20121227
  Receipt Date: 20121227
  Transmission Date: 20130627
  Serious: Yes (Other)
  Sender: FDA-Public Use
  Company Number: US-BAYER-2012-132873

PATIENT
  Age: 62 Year
  Sex: Female

DRUGS (1)
  1. CLIMARA PRO [Suspect]
     Indication: HOT FLASHES
     Dosage: UNK UNK, CONT
     Route: 062
     Dates: start: 201211

REACTIONS (3)
  - Ascites [None]
  - Oedema peripheral [None]
  - Mood swings [None]
